FAERS Safety Report 11284300 (Version 1)
Quarter: 2015Q3

REPORT INFORMATION
  Report Type: Spontaneous
  Country: US (occurrence: US)
  Receive Date: 20150720
  Receipt Date: 20150720
  Transmission Date: 20151125
  Serious: No
  Sender: FDA-Public Use
  Company Number: US-TAKEDA-2014TUS013359

PATIENT
  Age: 45 Year
  Sex: Female
  Weight: 80.73 kg

DRUGS (7)
  1. FIORICET [Concomitant]
     Active Substance: ACETAMINOPHEN\BUTALBITAL\CAFFEINE
     Indication: MIGRAINE
     Dosage: UNK, PRN
     Route: 048
     Dates: start: 20140529
  2. REMICADE [Suspect]
     Active Substance: INFLIXIMAB
     Indication: PRODUCT USED FOR UNKNOWN INDICATION
     Dosage: UNK
     Route: 065
  3. ENTYVIO [Suspect]
     Active Substance: VEDOLIZUMAB
     Indication: COLITIS ULCERATIVE
     Dosage: 300 MG, UNK
     Route: 042
     Dates: start: 20141016
  4. 6-MP [Concomitant]
     Active Substance: MERCAPTOPURINE
     Indication: COLITIS ULCERATIVE
     Dosage: 50 MG, QD
     Route: 048
     Dates: start: 20131105
  5. LEVSIN [Concomitant]
     Active Substance: HYOSCYAMINE SULFATE
     Indication: IRRITABLE BOWEL SYNDROME
     Dosage: 0.125 MG, PRN
     Route: 058
     Dates: start: 20131108
  6. SUPRAX                             /00821801/ [Concomitant]
     Indication: SINUSITIS
     Dosage: UNK
     Route: 048
     Dates: start: 20141006
  7. M-END [Concomitant]
     Indication: COUGH
     Dosage: UNK, PRN
     Route: 048
     Dates: start: 20141006

REACTIONS (3)
  - Arthralgia [Recovering/Resolving]
  - Myalgia [Recovering/Resolving]
  - Muscle fatigue [Recovering/Resolving]

NARRATIVE: CASE EVENT DATE: 20141017
